FAERS Safety Report 6073156-5 (Version None)
Quarter: 2009Q1

REPORT INFORMATION
  Report Type: 
  Country: None (occurrence: None)
  Receive Date: 20090211
  Receipt Date: 20090130
  Transmission Date: 20090719
  Serious: Yes (Hospitalization)
  Sender: FDA-Public Use
  Company Number: JP-AMGEN-US314617

PATIENT
  Sex: Male
  Weight: 52 kg

DRUGS (5)
  1. ENBREL [Suspect]
     Indication: RHEUMATOID ARTHRITIS
     Dosage: UNSPECIFIED
     Route: 058
     Dates: start: 20061001
  2. OPALMON [Concomitant]
     Dosage: UNSPECIFIED
     Route: 048
     Dates: end: 20080104
  3. OPALMON [Concomitant]
     Dosage: UNSPECIFIED
     Route: 048
     Dates: start: 20080128
  4. VOLTAREN [Concomitant]
     Dosage: UNSPECIFIED
     Route: 048
     Dates: end: 20080104
  5. VOLTAREN [Concomitant]
     Dosage: UNSPECIFIED
     Route: 048
     Dates: start: 20080128

REACTIONS (1)
  - LEUKOENCEPHALOPATHY [None]
